FAERS Safety Report 9006282 (Version 1)
Quarter: 2013Q1

REPORT INFORMATION
  Report Type: Spontaneous
  Country: US (occurrence: US)
  Receive Date: 20130110
  Receipt Date: 20130110
  Transmission Date: 20140127
  Serious: Yes (Other)
  Sender: FDA-Public Use
  Company Number: US-009507513-0907USA03609

PATIENT
  Age: 8 Year
  Sex: Female
  Weight: 36.29 kg

DRUGS (2)
  1. SINGULAIR [Suspect]
     Indication: ASTHMA
     Dosage: 5 MG, QD
     Route: 048
     Dates: start: 20061010, end: 20080810
  2. SINGULAIR [Suspect]
     Dosage: 5 MG, QD
     Route: 048
     Dates: start: 200808

REACTIONS (6)
  - Abnormal behaviour [Recovered/Resolved]
  - Anhedonia [Recovered/Resolved]
  - Anxiety [Recovered/Resolved]
  - Educational problem [Recovered/Resolved]
  - Increased appetite [Recovered/Resolved]
  - Mood swings [Recovered/Resolved]
